FAERS Safety Report 17534754 (Version 1)
Quarter: 2020Q1

REPORT INFORMATION
  Report Type: Spontaneous
  Country: US (occurrence: US)
  Receive Date: 20200312
  Receipt Date: 20200312
  Transmission Date: 20200409
  Serious: Yes (Death, Hospitalization)
  Sender: FDA-Public Use
  Company Number: US-PURDUE PHARMA-USA-2003-0008421

PATIENT
  Age: 34 Year
  Sex: Male

DRUGS (1)
  1. OXYCODONE HYDROCHLORIDE (SIMILAR TO NDA 22-272) [Suspect]
     Active Substance: OXYCODONE HYDROCHLORIDE
     Indication: PAIN
     Dosage: 5 MG, UNK
     Route: 048

REACTIONS (6)
  - Cardio-respiratory arrest [Fatal]
  - Drug abuser [Fatal]
  - Pyrexia [Unknown]
  - Infection [Unknown]
  - Accidental overdose [Fatal]
  - Vomiting [Unknown]

NARRATIVE: CASE EVENT DATE: 20010329
